FAERS Safety Report 6689401-9 (Version None)
Quarter: 2010Q2

REPORT INFORMATION
  Report Type: 
  Country: None (occurrence: None)
  Receive Date: 20100419
  Receipt Date: 20100419
  Transmission Date: 20101027
  Serious: Yes (Other)
  Sender: FDA-Public Use
  Company Number: None

PATIENT

DRUGS (2)
  1. AMBIEN CR [Suspect]
     Dosage: 12.5 MILLIGRAMS
     Dates: start: 20100412
  2. AZITHROMYCIN [Suspect]

REACTIONS (9)
  - AGGRESSION [None]
  - ALCOHOL USE [None]
  - AMNESIA [None]
  - CONVULSION [None]
  - DRUG INTERACTION [None]
  - INITIAL INSOMNIA [None]
  - REFUSAL OF TREATMENT BY PATIENT [None]
  - SPEECH DISORDER [None]
  - UNRESPONSIVE TO STIMULI [None]
